FAERS Safety Report 13504064 (Version 4)
Quarter: 2017Q2

REPORT INFORMATION
  Report Type: Report from Study
  Country: TW (occurrence: TW)
  Receive Date: 20170502
  Receipt Date: 20170626
  Transmission Date: 20170830
  Serious: Yes (Hospitalization, Other)
  Sender: FDA-Public Use
  Company Number: TW-INCYTE CORPORATION-2017IN003274

PATIENT

DRUGS (2)
  1. JAKAVI [Suspect]
     Active Substance: RUXOLITINIB
     Dosage: 10 MG, UNK
     Route: 048
     Dates: start: 20170509
  2. JAKAVI [Suspect]
     Active Substance: RUXOLITINIB
     Indication: MYELOFIBROSIS
     Dosage: 10 MG, UNK
     Route: 048
     Dates: start: 20161226, end: 20170417

REACTIONS (41)
  - Myelofibrosis [Recovered/Resolved]
  - Pneumobilia [Unknown]
  - Occult blood positive [Unknown]
  - Infection [Not Recovered/Not Resolved]
  - Procalcitonin increased [Unknown]
  - Splenomegaly [Unknown]
  - Hepatic cyst [Unknown]
  - Atrial fibrillation [Not Recovered/Not Resolved]
  - Injection site phlebitis [Recovered/Resolved]
  - Cough [Unknown]
  - Lung infiltration [Unknown]
  - Tenderness [Unknown]
  - Dizziness [Unknown]
  - Hypotension [Unknown]
  - Tachycardia [Unknown]
  - Fluid overload [Unknown]
  - Pneumonia [Recovered/Resolved]
  - Abdominal infection [Not Recovered/Not Resolved]
  - Salmonella bacteraemia [Recovered/Resolved]
  - Leukocytosis [Unknown]
  - Aortic arteriosclerosis [Unknown]
  - Stridor [Unknown]
  - Thrombocytopenia [Unknown]
  - Mitral valve calcification [Unknown]
  - Tachypnoea [Unknown]
  - Cholelithiasis [Unknown]
  - Pleural effusion [Unknown]
  - Hyperglycaemia [Recovered/Resolved]
  - Pyrexia [Not Recovered/Not Resolved]
  - Haemodynamic instability [Not Recovered/Not Resolved]
  - Soft tissue infection [Not Recovered/Not Resolved]
  - Acute respiratory failure [Recovered/Resolved]
  - Aortic stenosis [Unknown]
  - Stress ulcer [Unknown]
  - Pain [Not Recovered/Not Resolved]
  - Palpitations [Unknown]
  - Anaemia macrocytic [Not Recovered/Not Resolved]
  - Breast neoplasm [Unknown]
  - Musculoskeletal stiffness [Unknown]
  - N-terminal prohormone brain natriuretic peptide increased [Unknown]
  - Liver disorder [Unknown]

NARRATIVE: CASE EVENT DATE: 20160416
